FAERS Safety Report 17564091 (Version 1)
Quarter: 2020Q1

REPORT INFORMATION
  Report Type: Spontaneous
  Country: CA (occurrence: CA)
  Receive Date: 20200320
  Receipt Date: 20200320
  Transmission Date: 20200409
  Serious: Yes (Other)
  Sender: FDA-Public Use
  Company Number: CA-SA-2020SA064021

PATIENT
  Age: 69 Year
  Sex: Female

DRUGS (1)
  1. PRALUENT [Suspect]
     Active Substance: ALIROCUMAB
     Dosage: 150 MG

REACTIONS (6)
  - Swelling face [Unknown]
  - Sinus disorder [Unknown]
  - Urinary retention [Unknown]
  - Insomnia [Unknown]
  - Cough [Unknown]
  - Gastric dilatation [Unknown]
